FAERS Safety Report 20997785 (Version 1)
Quarter: 2022Q2

REPORT INFORMATION
  Report Type: Spontaneous
  Country: US (occurrence: None)
  Receive Date: 20220622
  Receipt Date: 20220622
  Transmission Date: 20220721
  Serious: No
  Sender: FDA-Public Use
  Company Number: None

PATIENT
  Sex: Female

DRUGS (1)
  1. HUMIRA [Suspect]
     Active Substance: ADALIMUMAB
     Indication: Psoriatic arthropathy
     Dosage: 1 PEN EVERY 14 DAYS UNDER THE SKIN
     Route: 058
     Dates: start: 20190727

REACTIONS (3)
  - Erythema [None]
  - Pruritus [None]
  - Skin burning sensation [None]
